FAERS Safety Report 19772633 (Version 1)
Quarter: 2021Q3

REPORT INFORMATION
  Report Type: Spontaneous
  Country: AU (occurrence: AU)
  Receive Date: 20210901
  Receipt Date: 20210901
  Transmission Date: 20211014
  Serious: Yes (Life-Threatening, Hospitalization, Disabling, Other)
  Sender: FDA-Public Use
  Company Number: None

PATIENT
  Sex: Female
  Weight: 70 kg

DRUGS (1)
  1. ABILIFY [Suspect]
     Active Substance: ARIPIPRAZOLE
     Indication: PRODUCT USED FOR UNKNOWN INDICATION

REACTIONS (17)
  - Crying [None]
  - Muscle twitching [None]
  - Illness [None]
  - Menstrual disorder [None]
  - Insomnia [None]
  - Family stress [None]
  - Suicidal ideation [None]
  - Impaired work ability [None]
  - Hypersomnia [None]
  - Dyspnoea [None]
  - Dry skin [None]
  - Thrombosis [None]
  - Constipation [None]
  - Myalgia [None]
  - Cyst [None]
  - Paraesthesia [None]
  - Dysphagia [None]

NARRATIVE: CASE EVENT DATE: 20160113
